FAERS Safety Report 17036866 (Version 3)
Quarter: 2019Q4

REPORT INFORMATION
  Report Type: Spontaneous
  Country: FR (occurrence: FR)
  Receive Date: 20191115
  Receipt Date: 20191122
  Transmission Date: 20200122
  Serious: Yes (Other)
  Sender: FDA-Public Use
  Company Number: FR-PFIZER INC-2019491362

PATIENT
  Age: 70 Year
  Sex: Female
  Weight: 63 kg

DRUGS (10)
  1. FUNGIZONE [Concomitant]
     Active Substance: AMPHOTERICIN B
     Dosage: UNK
  2. EUPANTOL [Suspect]
     Active Substance: PANTOPRAZOLE SODIUM
     Dosage: 40 MG, 1X/DAY (QD) (AT ONE DOSAGE FORM DAILY)
     Route: 048
     Dates: start: 20190807, end: 20190822
  3. PARACETAMOL ARROW [Suspect]
     Active Substance: ACETAMINOPHEN
     Indication: PAIN
     Dosage: 3 DF, 1X/DAY
     Route: 048
     Dates: start: 20190816, end: 20190901
  4. SPAGULAX [Concomitant]
     Active Substance: PLANTAGO OVATA SEED
     Dosage: UNK
  5. ECONAZOLE NITRATE. [Concomitant]
     Active Substance: ECONAZOLE NITRATE
     Dosage: UNK
  6. DALACINE [Suspect]
     Active Substance: CLINDAMYCIN
     Indication: INTERVERTEBRAL DISCITIS
     Dosage: 1800 MG, 1X/DAY (QD) (AT SIX DOSAGE FORM)
     Route: 048
     Dates: start: 20190817, end: 20190828
  7. VOGALENE [Concomitant]
     Active Substance: METOPIMAZINE
     Dosage: UNK
  8. TOPALGIC LP [Suspect]
     Active Substance: TRAMADOL HYDROCHLORIDE
     Indication: PAIN
     Dosage: 2 DF, 1X/DAY (200 MILLIGRAMS DAILY)
     Route: 048
     Dates: start: 20190816, end: 20190826
  9. RIFADINE [Suspect]
     Active Substance: RIFAMPIN
     Indication: INTERVERTEBRAL DISCITIS
     Dosage: 4 DF, 1X/DAY
     Route: 048
     Dates: start: 20190817, end: 20190828
  10. UVEDOSE [Concomitant]
     Active Substance: CHOLECALCIFEROL
     Dosage: UNK

REACTIONS (3)
  - Pruritus [Recovered/Resolved]
  - Eosinophilia [Not Recovered/Not Resolved]
  - Rash macular [Recovered/Resolved]

NARRATIVE: CASE EVENT DATE: 20190824
